FAERS Safety Report 25281967 (Version 2)
Quarter: 2025Q2

REPORT INFORMATION
  Report Type: Spontaneous
  Country: US (occurrence: US)
  Receive Date: 20250508
  Receipt Date: 20250509
  Transmission Date: 20250717
  Serious: No
  Sender: NOVARTIS
  Company Number: US-002147023-NVSC2025US072983

PATIENT
  Sex: Female

DRUGS (1)
  1. IPTACOPAN [Suspect]
     Active Substance: IPTACOPAN
     Indication: IgA nephropathy
     Dosage: 200 MG, BID
     Route: 048

REACTIONS (2)
  - Migraine [Recovering/Resolving]
  - Headache [Recovering/Resolving]
